FAERS Safety Report 6855053-8 (Version None)
Quarter: 2010Q3

REPORT INFORMATION
  Report Type: 
  Country: None (occurrence: None)
  Receive Date: 20100717
  Receipt Date: 20081125
  Transmission Date: 20110219
  Serious: Yes (Hospitalization, Other)
  Sender: FDA-Public Use
  Company Number: US-PFIZER INC-2008001768

PATIENT
  Age: 65 Year
  Sex: Female

DRUGS (13)
  1. CHAMPIX [Suspect]
     Route: 048
  2. ROSIGLITAZONE [Suspect]
     Route: 048
  3. CIPRO [Suspect]
     Dosage: 500 MG, UNK
  4. BEZAFIBRATE [Concomitant]
     Route: 048
  5. LERCANIDIPINE [Concomitant]
     Route: 048
  6. LOSARTAN POSTASSIUM [Concomitant]
     Route: 048
  7. SIMVASTATIN [Concomitant]
     Route: 048
  8. ALTACE [Concomitant]
  9. HYDROCHLOROTHIAZIDE [Concomitant]
  10. LIPITOR [Concomitant]
  11. METFORMIN [Concomitant]
  12. NORVASC [Concomitant]
  13. PLAVIX [Concomitant]

REACTIONS (2)
  - ACUTE MYOCARDIAL INFARCTION [None]
  - CHEST PAIN [None]
